FAERS Safety Report 5094497-4 (Version None)
Quarter: 2006Q3

REPORT INFORMATION
  Report Type: 
  Country: None (occurrence: None)
  Receive Date: 20060731
  Receipt Date: 20060420
  Transmission Date: 20061208
  Serious: No
  Sender: FDA-Public Use
  Company Number: 2006PV012500

PATIENT
  Age: 71 Year
  Sex: Female
  Weight: 79.3795 kg

DRUGS (4)
  1. BYETTA [Suspect]
     Indication: DIABETES MELLITUS NON-INSULIN-DEPENDENT
     Dosage: 10 MCG; BID; SC; SEE IMAGE
     Route: 058
     Dates: start: 20060201, end: 20060301
  2. BYETTA [Suspect]
     Indication: DIABETES MELLITUS NON-INSULIN-DEPENDENT
     Dosage: 10 MCG; BID; SC; SEE IMAGE
     Route: 058
     Dates: start: 20060301, end: 20060416
  3. GLUCOPHAGE [Concomitant]
  4. GLUCOTROL [Concomitant]

REACTIONS (5)
  - CONSTIPATION [None]
  - FAECES HARD [None]
  - INJECTION SITE HAEMORRHAGE [None]
  - INJECTION SITE PUSTULE [None]
  - NAUSEA [None]
